FAERS Safety Report 4510233-1 (Version None)
Quarter: 2004Q4

REPORT INFORMATION
  Report Type: 
  Country: None (occurrence: None)
  Receive Date: 20041124
  Receipt Date: 20041113
  Transmission Date: 20050328
  Serious: Yes (Disabling)
  Sender: FDA-Public Use
  Company Number: JP-ROCHE-386318

PATIENT
  Age: 10 Month
  Sex: Male

DRUGS (1)
  1. TAMIFLU [Suspect]
     Dosage: DOSING AMOUNT REPORTED AS: 35 GM.
     Route: 048
     Dates: start: 20040215, end: 20040219

REACTIONS (3)
  - CONVULSION [None]
  - ENCEPHALITIS [None]
  - HEMIPLEGIA [None]
